FAERS Safety Report 8616758-1 (Version None)
Quarter: 2012Q3

REPORT INFORMATION
  Report Type: 
  Country: None (occurrence: None)
  Receive Date: 20120823
  Receipt Date: 20120803
  Transmission Date: 20120928
  Serious: No
  Sender: FDA-Public Use
  Company Number: US-009507513-1208USA001582

PATIENT

DRUGS (2)
  1. ISENTRESS [Suspect]
     Dosage: 400 MG, BID
     Route: 048
  2. ISENTRESS [Suspect]
     Dosage: 800 MG, QD
     Route: 048

REACTIONS (2)
  - INAPPROPRIATE SCHEDULE OF DRUG ADMINISTRATION [None]
  - NO ADVERSE EVENT [None]
